FAERS Safety Report 25091019 (Version 1)
Quarter: 2025Q1

REPORT INFORMATION
  Report Type: Report from Study
  Country: CA (occurrence: CA)
  Receive Date: 20250318
  Receipt Date: 20250318
  Transmission Date: 20250409
  Serious: No
  Sender: TAKEDA
  Company Number: CA-TAKEDA-2024TUS006501

PATIENT
  Age: 77 Year
  Sex: Female
  Weight: 76 kg

DRUGS (14)
  1. HUMAN IMMUNOGLOBULIN G\HYALURONIDASE RECOMBINANT HUMAN [Suspect]
     Active Substance: HUMAN IMMUNOGLOBULIN G\HYALURONIDASE (HUMAN RECOMBINANT)
     Indication: Primary immunodeficiency syndrome
     Dosage: 30 GRAM, Q4WEEKS
     Dates: start: 20240112
  2. HUMAN IMMUNOGLOBULIN G\HYALURONIDASE RECOMBINANT HUMAN [Suspect]
     Active Substance: HUMAN IMMUNOGLOBULIN G\HYALURONIDASE (HUMAN RECOMBINANT)
     Dosage: 30 GRAM, Q4WEEKS
  3. HUMAN IMMUNOGLOBULIN G\HYALURONIDASE RECOMBINANT HUMAN [Suspect]
     Active Substance: HUMAN IMMUNOGLOBULIN G\HYALURONIDASE (HUMAN RECOMBINANT)
  4. CUVITRU [Concomitant]
     Active Substance: HUMAN IMMUNOGLOBULIN G
  5. FASENRA [Concomitant]
     Active Substance: BENRALIZUMAB
  6. RABEPRAZOLE [Concomitant]
     Active Substance: RABEPRAZOLE
  7. SYNTHROID [Concomitant]
     Active Substance: LEVOTHYROXINE SODIUM
  8. SINGULAIR [Concomitant]
     Active Substance: MONTELUKAST SODIUM
  9. Reactin [Concomitant]
  10. LUVOX [Concomitant]
     Active Substance: FLUVOXAMINE MALEATE
  11. ALBUTEROL [Concomitant]
     Active Substance: ALBUTEROL
  12. ATROVENT [Concomitant]
     Active Substance: IPRATROPIUM BROMIDE
  13. ADVAIR HFA [Concomitant]
     Active Substance: FLUTICASONE PROPIONATE\SALMETEROL XINAFOATE
  14. ALVESCO [Concomitant]
     Active Substance: CICLESONIDE

REACTIONS (23)
  - Infusion site erythema [Recovered/Resolved]
  - Infusion site discomfort [Recovered/Resolved]
  - Arthritis [Recovering/Resolving]
  - Infusion related reaction [Unknown]
  - Eye swelling [Recovered/Resolved]
  - Infusion site swelling [Unknown]
  - Weight increased [Recovered/Resolved]
  - Heart rate increased [Recovered/Resolved]
  - Thyroid hormones decreased [Not Recovered/Not Resolved]
  - Injection site erythema [Recovered/Resolved]
  - Peripheral swelling [Not Recovered/Not Resolved]
  - Joint swelling [Not Recovered/Not Resolved]
  - Swelling face [Recovered/Resolved]
  - Pruritus [Not Recovered/Not Resolved]
  - Burning sensation [Not Recovered/Not Resolved]
  - Diarrhoea [Recovered/Resolved]
  - Dizziness [Recovered/Resolved]
  - Blood pressure increased [Recovered/Resolved]
  - Erythema [Not Recovered/Not Resolved]
  - Fatigue [Recovered/Resolved]
  - Headache [Recovered/Resolved]
  - Product preparation issue [Unknown]
  - Product use issue [Unknown]

NARRATIVE: CASE EVENT DATE: 20240119
